FAERS Safety Report 19483560 (Version 1)
Quarter: 2021Q3

REPORT INFORMATION
  Report Type: Spontaneous
  Country: CA (occurrence: CA)
  Receive Date: 20210701
  Receipt Date: 20210701
  Transmission Date: 20211014
  Serious: Yes (Hospitalization)
  Sender: FDA-Public Use
  Company Number: CA-BAYER-2021-166921

PATIENT
  Age: 16 Year
  Sex: Female

DRUGS (3)
  1. GADOVIST [Suspect]
     Active Substance: GADOBUTROL
     Indication: MAGNETIC RESONANCE IMAGING
     Dosage: 6 ML, ONCE
     Route: 042
  2. BUSCOPAN [Suspect]
     Active Substance: BUTYLSCOPOLAMINE BROMIDE
     Indication: MAGNETIC RESONANCE IMAGING
     Dosage: 0.9 ML, ONCE
     Route: 042
  3. SORBITOL. [Suspect]
     Active Substance: SORBITOL
     Indication: MAGNETIC RESONANCE IMAGING
     Dosage: 1200 ML, ONCE
     Route: 048

REACTIONS (3)
  - Pruritus [Unknown]
  - Headache [Unknown]
  - Vision blurred [Unknown]
